FAERS Safety Report 4831998-5 (Version None)
Quarter: 2005Q4

REPORT INFORMATION
  Report Type: 
  Country: None (occurrence: None)
  Receive Date: 20051118
  Receipt Date: 20051021
  Transmission Date: 20060501
  Serious: Yes (Hospitalization)
  Sender: FDA-Public Use
  Company Number: SE-ABBOTT-05P-150-0314946-00

PATIENT
  Age: 55 Year
  Sex: Female

DRUGS (5)
  1. HUMIRA [Suspect]
     Indication: RHEUMATOID ARTHRITIS
     Route: 058
     Dates: start: 20050721, end: 20050818
  2. TWINRIX ADULT [Suspect]
     Indication: IMMUNISATION
     Route: 030
     Dates: start: 20050731, end: 20050731
  3. TWINRIX ADULT [Suspect]
     Dates: start: 20041101, end: 20041101
  4. TWINRIX ADULT [Suspect]
     Dates: start: 20040401, end: 20040401
  5. LEVOTHYROXINE SODIUM [Concomitant]
     Indication: DRUG USE FOR UNKNOWN INDICATION

REACTIONS (12)
  - ANXIETY [None]
  - APRAXIA [None]
  - BALANCE DISORDER [None]
  - DEPRESSED LEVEL OF CONSCIOUSNESS [None]
  - DIPLOPIA [None]
  - DIZZINESS [None]
  - LOSS OF CONSCIOUSNESS [None]
  - MULTIPLE SCLEROSIS [None]
  - NEUROLOGICAL SYMPTOM [None]
  - NYSTAGMUS [None]
  - OPHTHALMOPLEGIA [None]
  - PUPILS UNEQUAL [None]
